FAERS Safety Report 23346081 (Version 1)
Quarter: 2023Q4

REPORT INFORMATION
  Report Type: Spontaneous
  Country: JP (occurrence: JP)
  Receive Date: 20231228
  Receipt Date: 20231228
  Transmission Date: 20240110
  Serious: Yes (Other)
  Sender: FDA-Public Use
  Company Number: JP-BIOCODEX2-2023001816

PATIENT
  Age: 2 Year
  Sex: Male

DRUGS (2)
  1. DIACOMIT [Suspect]
     Active Substance: STIRIPENTOL
     Indication: Severe myoclonic epilepsy of infancy
     Dosage: 300 MG PER DAY
     Route: 048
  2. VALPROATE SODIUM [Concomitant]
     Active Substance: VALPROATE SODIUM
     Indication: Severe myoclonic epilepsy of infancy
     Route: 065

REACTIONS (3)
  - Platelet count decreased [Unknown]
  - Febrile convulsion [Unknown]
  - Product use in unapproved indication [Unknown]
